FAERS Safety Report 25241288 (Version 2)
Quarter: 2025Q3

REPORT INFORMATION
  Report Type: Spontaneous
  Country: EU (occurrence: EU)
  Receive Date: 20250425
  Receipt Date: 20250803
  Transmission Date: 20251020
  Serious: Yes (Hospitalization, Other)
  Sender: ALEXION PHARMACEUTICALS
  Company Number: EU-ALXN-202406EEA000937DE

PATIENT
  Age: 61 Year
  Sex: Male
  Weight: 103 kg

DRUGS (2)
  1. ULTOMIRIS [Suspect]
     Active Substance: RAVULIZUMAB-CWVZ
     Indication: Myasthenia gravis
     Route: 065
  2. ULTOMIRIS [Suspect]
     Active Substance: RAVULIZUMAB-CWVZ
     Route: 065

REACTIONS (2)
  - Meningococcal sepsis [Recovered/Resolved]
  - Meningitis meningococcal [Recovered/Resolved]

NARRATIVE: CASE EVENT DATE: 20240424
